FAERS Safety Report 23741340 (Version 2)
Quarter: 2025Q3

REPORT INFORMATION
  Report Type: Spontaneous
  Country: US (occurrence: US)
  Receive Date: 20240415
  Receipt Date: 20250916
  Transmission Date: 20251020
  Serious: No
  Sender: TEVA
  Company Number: US-TEVA-VS-3176856

PATIENT
  Age: 65 Year
  Sex: Female

DRUGS (1)
  1. LOVASTATIN [Suspect]
     Active Substance: LOVASTATIN
     Indication: Blood cholesterol increased
     Route: 065
     Dates: start: 20240325

REACTIONS (3)
  - Pruritus [Not Recovered/Not Resolved]
  - Product use issue [Unknown]
  - Pain in extremity [Recovered/Resolved]

NARRATIVE: CASE EVENT DATE: 20240325
